FAERS Safety Report 17264327 (Version 1)
Quarter: 2020Q1

REPORT INFORMATION
  Report Type: Spontaneous
  Country: US (occurrence: US)
  Receive Date: 20200113
  Receipt Date: 20200113
  Transmission Date: 20200409
  Serious: Yes (Hospitalization, Other)
  Sender: FDA-Public Use
  Company Number: US-009507513-2001USA001231

PATIENT
  Age: 29 Year
  Sex: Female

DRUGS (1)
  1. NUVARING [Suspect]
     Active Substance: ETHINYL ESTRADIOL\ETONOGESTREL
     Indication: UTERINE HAEMORRHAGE
     Dosage: AN NUVARING
     Route: 067

REACTIONS (2)
  - Product use in unapproved indication [Unknown]
  - Cerebral venous thrombosis [Recovering/Resolving]
